FAERS Safety Report 9751894 (Version 1)
Quarter: 2013Q4

REPORT INFORMATION
  Report Type: Spontaneous
  Country: IT (occurrence: IT)
  Receive Date: 20131213
  Receipt Date: 20131213
  Transmission Date: 20140711
  Serious: Yes (Other)
  Sender: FDA-Public Use
  Company Number: IT-BRISTOL-MYERS SQUIBB COMPANY-19884386

PATIENT
  Age: 37 Year
  Sex: Female

DRUGS (1)
  1. KENACORT-A [Suspect]

REACTIONS (2)
  - Cushing^s syndrome [Unknown]
  - Drug administration error [Unknown]
